FAERS Safety Report 21015090 (Version 1)
Quarter: 2022Q2

REPORT INFORMATION
  Report Type: Spontaneous
  Country: GB (occurrence: GB)
  Receive Date: 20220628
  Receipt Date: 20220628
  Transmission Date: 20220721
  Serious: Yes (Hospitalization)
  Sender: FDA-Public Use
  Company Number: GB-SUN PHARMACEUTICAL INDUSTRIES LTD-2022RR-342082

PATIENT
  Age: 55 Year
  Sex: Female
  Weight: 80 kg

DRUGS (6)
  1. SERTRALINE [Suspect]
     Active Substance: SERTRALINE HYDROCHLORIDE
     Indication: Ill-defined disorder
     Dosage: UNK
     Route: 065
     Dates: start: 20220613
  2. SERTRALINE [Suspect]
     Active Substance: SERTRALINE HYDROCHLORIDE
     Indication: Ill-defined disorder
     Dosage: UNK
     Route: 048
     Dates: start: 20220613, end: 20220613
  3. BECLOMETHASONE DIPROPIONATE [Concomitant]
     Active Substance: BECLOMETHASONE DIPROPIONATE
     Indication: Ill-defined disorder
     Dosage: INHALE 2 DOSES TWICE DAILY, ASTHMA PREVENTER
     Route: 065
     Dates: start: 20200319
  4. OMEPRAZOLE [Concomitant]
     Active Substance: OMEPRAZOLE
     Indication: Ill-defined disorder
     Dosage: TAKE ONE DAILY
     Route: 065
     Dates: start: 20211012
  5. ALBUTEROL [Concomitant]
     Active Substance: ALBUTEROL
     Indication: Ill-defined disorder
     Dosage: INHALE ONE OR TWO DOSES AS NEEDED UP TO FOUR TI...
     Route: 065
     Dates: start: 20200210
  6. SERTRALINE [Concomitant]
     Active Substance: SERTRALINE HYDROCHLORIDE
     Indication: Ill-defined disorder
     Dosage: TAKE HALF DAILY AND INCREASE TO ONE DAILY AFTER...
     Route: 065
     Dates: start: 20220516, end: 20220613

REACTIONS (1)
  - Adverse drug reaction [Recovering/Resolving]

NARRATIVE: CASE EVENT DATE: 20220613
